FAERS Safety Report 16555434 (Version 2)
Quarter: 2019Q3

REPORT INFORMATION
  Report Type: Spontaneous
  Country: DE (occurrence: DE)
  Receive Date: 20190710
  Receipt Date: 20190719
  Transmission Date: 20191004
  Serious: Yes (Hospitalization, Other)
  Sender: FDA-Public Use
  Company Number: DE-PFIZER INC-2018175241

PATIENT
  Age: 60 Year
  Sex: Female

DRUGS (7)
  1. APIXABAN [Interacting]
     Active Substance: APIXABAN
     Dosage: 5 MILLIGRAM, BID
     Route: 048
  2. APIXABAN [Interacting]
     Active Substance: APIXABAN
     Indication: VASCULAR STENT THROMBOSIS
     Dosage: 5 MILLIGRAM, BID
     Route: 048
  3. IBUPROFEN. [Suspect]
     Active Substance: IBUPROFEN
     Indication: PAIN
     Dosage: 600 MG, AS NEEDED
     Route: 065
  4. ACETYLSALICYLIC ACID [Interacting]
     Active Substance: ASPIRIN
     Indication: VASCULAR STENT THROMBOSIS
     Dosage: 100 MG, QD
     Route: 065
  5. ATORVASTATIN [Concomitant]
     Active Substance: ATORVASTATIN
     Dosage: UNK
     Route: 065
  6. PHENPROCOUMON [Interacting]
     Active Substance: PHENPROCOUMON
     Indication: VASCULAR STENT THROMBOSIS
     Dosage: DOSE: MOST RECENTLY THREE-QUARTER TABLET OF 3 MG OF MARCUMAR DAILY
     Route: 048
     Dates: start: 2006
  7. VALSARTAN. [Concomitant]
     Active Substance: VALSARTAN
     Indication: HYPERTENSION
     Dosage: UNK
     Route: 065

REACTIONS (5)
  - Intentional product use issue [Recovered/Resolved]
  - Labelled drug-drug interaction medication error [Unknown]
  - Rectal haemorrhage [Recovered/Resolved]
  - Off label use [Unknown]
  - Anaemia [Recovered/Resolved]
